FAERS Safety Report 4894000-5 (Version None)
Quarter: 2006Q1

REPORT INFORMATION
  Report Type: 
  Country: None (occurrence: None)
  Receive Date: 20060127
  Receipt Date: 20050419
  Transmission Date: 20060701
  Serious: No
  Sender: FDA-Public Use
  Company Number: US-GLAXOSMITHKLINE-A0554854A

PATIENT
  Sex: Female

DRUGS (3)
  1. WELLBUTRIN [Suspect]
     Dosage: 150MG THREE TIMES PER DAY
     Route: 048
     Dates: start: 19980101
  2. BUSPAR [Concomitant]
  3. TOPAMAX [Concomitant]

REACTIONS (3)
  - BRADYCARDIA [None]
  - INSOMNIA [None]
  - WEIGHT DECREASED [None]
